FAERS Safety Report 16737125 (Version 4)
Quarter: 2024Q3

REPORT INFORMATION
  Report Type: Report from Study
  Country: CA (occurrence: CA)
  Receive Date: 20190823
  Receipt Date: 20240719
  Transmission Date: 20241016
  Serious: Yes (Life-Threatening, Hospitalization, Other)
  Sender: NOVARTIS
  Company Number: PHHY2019CA036661

PATIENT
  Age: 73 Year
  Sex: Male

DRUGS (4)
  1. COSENTYX [Suspect]
     Active Substance: SECUKINUMAB
     Indication: Psoriasis
     Dosage: 300 MG, Q4W
     Route: 058
     Dates: start: 20180618, end: 20180709
  2. COSENTYX [Suspect]
     Active Substance: SECUKINUMAB
     Dosage: 300 MG, Q4W
     Route: 058
     Dates: start: 20180716
  3. LYDERM [Concomitant]
     Indication: Product used for unknown indication
     Dosage: UNK
     Route: 065
     Dates: start: 20170221
  4. BETAMETHASONE DIPROPIONATE\CALCIPOTRIENE MONOHYDRATE [Concomitant]
     Active Substance: BETAMETHASONE DIPROPIONATE\CALCIPOTRIENE MONOHYDRATE
     Indication: Product used for unknown indication
     Dosage: UNK
     Route: 065
     Dates: start: 20160126

REACTIONS (21)
  - Small cell lung cancer extensive stage [Not Recovered/Not Resolved]
  - Pulmonary mass [Recovering/Resolving]
  - Clostridium difficile colitis [Recovered/Resolved]
  - Idiopathic pulmonary fibrosis [Recovering/Resolving]
  - Vasogenic cerebral oedema [Unknown]
  - Arteriosclerosis coronary artery [Unknown]
  - Tooth abscess [Recovered/Resolved]
  - Interstitial lung disease [Unknown]
  - Metastases to liver [Unknown]
  - Metastases to bone [Unknown]
  - Renal impairment [Recovering/Resolving]
  - Dyspnoea [Unknown]
  - Emphysema [Unknown]
  - Benign neoplasm of adrenal gland [Unknown]
  - Urinary tract infection [Recovered/Resolved]
  - Mediastinal mass [Unknown]
  - Papillary cystadenoma lymphomatosum [Unknown]
  - Pleomorphic adenoma [Unknown]
  - Hepatic lesion [Unknown]
  - Intracranial mass [Unknown]
  - Nasal turbinate hypertrophy [Unknown]

NARRATIVE: CASE EVENT DATE: 20181207
